FAERS Safety Report 21424784 (Version 1)
Quarter: 2022Q4

REPORT INFORMATION
  Report Type: Spontaneous
  Country: DE (occurrence: DE)
  Receive Date: 20221008
  Receipt Date: 20221008
  Transmission Date: 20230113
  Serious: Yes (Hospitalization, Other)
  Sender: FDA-Public Use
  Company Number: DE-JNJFOC-20221003847

PATIENT
  Age: 48 Year
  Sex: Female
  Weight: 80 kg

DRUGS (12)
  1. TRAMADOL HYDROCHLORIDE [Suspect]
     Active Substance: TRAMADOL HYDROCHLORIDE
     Indication: Product used for unknown indication
     Dosage: UNK UNK, AS NEEDED
     Route: 065
  2. IBUPROFEN [Suspect]
     Active Substance: IBUPROFEN
     Indication: Product used for unknown indication
     Dosage: 600 MILLIGRAM, 3/DAY
     Route: 065
  3. CYANOCOBALAMIN/PYRIDOXINE HCL/THIAMINE MONONITRATE [Concomitant]
     Dosage: 1 DOSAGE FORM, 1/DAY
     Route: 065
  4. DIETARY SUPPLEMENT\HERBALS\MILK THISTLE [Concomitant]
     Active Substance: DIETARY SUPPLEMENT\HERBALS\MILK THISTLE
     Dosage: 167 MILLIGRAM, 1/DAY
     Route: 065
  5. DIENOGEST\ETHINYL ESTRADIOL [Concomitant]
     Active Substance: DIENOGEST\ETHINYL ESTRADIOL
     Dosage: 1 DOSAGE FORM, 1/DAY
     Route: 065
  6. MAGNESIUM [Concomitant]
     Active Substance: MAGNESIUM
     Dosage: 400 MILLIGRAM, 1/DAY
     Route: 065
  7. ANGOCIN ANTI INFEKT N [Concomitant]
     Dosage: 5 DOSAGE FORM, 1/DAY
     Route: 065
  8. ZINC ASPARTATE [Concomitant]
     Active Substance: ZINC ASPARTATE
     Dosage: 1 DOSAGE FORM, 1/DAY
     Route: 065
  9. DARIFENACIN [Concomitant]
     Active Substance: DARIFENACIN
     Dosage: 7.5 MILLIGRAM, AS NEEDED
     Route: 065
  10. CHOLECALCIFEROL [Concomitant]
     Active Substance: CHOLECALCIFEROL
     Dosage: 20000 INTERNATIONAL UNIT, 2/WEEK
     Route: 065
  11. RAMIPRIL [Concomitant]
     Active Substance: RAMIPRIL
     Dosage: 5 MILLIGRAM, 1/DAY
     Route: 065
  12. METAMIZOL [Concomitant]
     Active Substance: METAMIZOLE SODIUM
     Dosage: 100 DROP, 1/DAY
     Route: 065

REACTIONS (10)
  - Tachypnoea [Unknown]
  - Acute respiratory failure [Unknown]
  - Systemic infection [Unknown]
  - Cyanosis [Unknown]
  - Dyspnoea [Unknown]
  - Cerebral haemorrhage [Unknown]
  - Renal impairment [Unknown]
  - Bradypnoea [Unknown]
  - General physical health deterioration [Unknown]
  - Hypoxia [Unknown]
